FAERS Safety Report 5889472-3 (Version None)
Quarter: 2008Q3

REPORT INFORMATION
  Report Type: 
  Country: None (occurrence: None)
  Receive Date: 20080910
  Receipt Date: 20080829
  Transmission Date: 20090109
  Serious: Yes (Hospitalization, Other)
  Sender: FDA-Public Use
  Company Number: AEUSA200800183

PATIENT
  Age: 19 Year
  Sex: Male

DRUGS (1)
  1. KOATE-DVI [Suspect]
     Indication: FACTOR VIII DEFICIENCY
     Dosage: IV;
     Route: 042
     Dates: start: 20080731, end: 20080806

REACTIONS (3)
  - DRUG INEFFECTIVE [None]
  - INCORRECT DOSE ADMINISTERED [None]
  - PHARMACEUTICAL PRODUCT COMPLAINT [None]
